FAERS Safety Report 6011233-5 (Version None)
Quarter: 2008Q4

REPORT INFORMATION
  Report Type: 
  Country: None (occurrence: None)
  Receive Date: 20081218
  Receipt Date: 20081210
  Transmission Date: 20090506
  Serious: Yes (Other)
  Sender: FDA-Public Use
  Company Number: JP-MERCK-0811USA03548

PATIENT
  Age: 40 Year
  Sex: Male

DRUGS (1)
  1. PROPECIA [Suspect]
     Route: 048
     Dates: start: 20050101

REACTIONS (1)
  - BREAST CANCER MALE [None]
